FAERS Safety Report 10022857 (Version 1)
Quarter: 2014Q1

REPORT INFORMATION
  Report Type: Spontaneous
  Country: US (occurrence: US)
  Receive Date: 20140319
  Receipt Date: 20140319
  Transmission Date: 20141002
  Serious: No
  Sender: FDA-Public Use
  Company Number: US-PFIZER INC-2014077738

PATIENT
  Age: 54 Year
  Sex: Female

DRUGS (1)
  1. XALKORI [Suspect]
     Indication: COLON CANCER
     Dosage: 250 MG, 2X/DAY
     Dates: start: 20130917

REACTIONS (3)
  - Disease progression [Unknown]
  - Colon cancer [Unknown]
  - Off label use [Unknown]
